FAERS Safety Report 4422971-X (Version None)
Quarter: 2004Q3

REPORT INFORMATION
  Report Type: 
  Country: None (occurrence: None)
  Receive Date: 20040811
  Receipt Date: 20040730
  Transmission Date: 20050211
  Serious: Yes (Hospitalization, Other)
  Sender: FDA-Public Use
  Company Number: PHBS2004CH10448

PATIENT
  Sex: Male

DRUGS (3)
  1. NEORAL [Suspect]
     Indication: RENAL TRANSPLANT
     Dosage: 250 MG/D
     Dates: start: 19890101
  2. IMUREK [Concomitant]
     Indication: RENAL TRANSPLANT
     Dosage: 25 MG/D
     Dates: start: 19890101
  3. PREDNISONE [Concomitant]
     Indication: RENAL TRANSPLANT
     Dosage: 10 MG/D
     Dates: start: 19890101

REACTIONS (5)
  - DIVERTICULITIS INTESTINAL HAEMORRHAGIC [None]
  - ILEECTOMY [None]
  - INTESTINAL ANASTOMOSIS [None]
  - LARGE INTESTINE PERFORATION [None]
  - TRANSIENT ISCHAEMIC ATTACK [None]
